FAERS Safety Report 22253752 (Version 1)
Quarter: 2023Q2

REPORT INFORMATION
  Report Type: Report from Study
  Country: JP (occurrence: JP)
  Receive Date: 20230426
  Receipt Date: 20230426
  Transmission Date: 20230722
  Serious: Yes (Life-Threatening, Hospitalization, Other)
  Sender: FDA-Public Use
  Company Number: JP-BIOGEN-2020BI00888851

PATIENT
  Age: 4 Month
  Sex: Male
  Weight: 5 kg

DRUGS (13)
  1. SPINRAZA [Suspect]
     Active Substance: NUSINERSEN
     Indication: Spinal muscular atrophy
     Route: 050
     Dates: start: 20181003, end: 20181003
  2. SPINRAZA [Suspect]
     Active Substance: NUSINERSEN
     Route: 050
     Dates: start: 20181017, end: 20181017
  3. SPINRAZA [Suspect]
     Active Substance: NUSINERSEN
     Route: 050
     Dates: start: 20181101, end: 20181101
  4. SPINRAZA [Suspect]
     Active Substance: NUSINERSEN
     Route: 050
     Dates: start: 20181206, end: 20181206
  5. CARBOCYSTEINE [Concomitant]
     Active Substance: CARBOCYSTEINE
     Indication: Spinal muscular atrophy
     Route: 050
  6. MUCOSAL [Concomitant]
     Indication: Spinal muscular atrophy
     Route: 050
  7. CROMOLYN SODIUM [Concomitant]
     Active Substance: CROMOLYN SODIUM
     Indication: Spinal muscular atrophy
     Route: 050
  8. PROCATEROL HYDROCHLORIDE [Concomitant]
     Active Substance: PROCATEROL HYDROCHLORIDE
     Indication: Spinal muscular atrophy
     Route: 050
  9. SODIUM BICARBONATE [Concomitant]
     Active Substance: SODIUM BICARBONATE
     Indication: Gastrointestinal disorder prophylaxis
     Route: 050
     Dates: start: 20181128
  10. QUATTROVAC [Concomitant]
     Active Substance: DIPHTHERIA AND TETANUS TOXOIDS AND ACELLULAR PERTUSSIS VACCINE ADSORBED\POLIOVIRUS VACCINE, INACTIVA
     Indication: Immunisation
     Route: 050
     Dates: start: 20181023, end: 20181130
  11. ACTHIB [Concomitant]
     Active Substance: HAEMOPHILUS B CONJUGATE VACCINE (TETANUS TOXOID CONJUGATE)\HAEMOPHILUS INFLUENZAE TYPE B STRAIN 1482
     Indication: Immunisation
     Route: 050
     Dates: start: 20181023, end: 20181130
  12. PREVNAR 13 [Concomitant]
     Active Substance: PNEUMOCOCCAL 13-VALENT CONJUGATE VACCINE
     Indication: Immunisation
     Route: 050
     Dates: start: 20181023, end: 20181130
  13. BIMMUGEN [Concomitant]
     Active Substance: HEPATITIS B VIRUS VACCINE
     Indication: Immunisation
     Route: 050
     Dates: start: 20181023, end: 20181130

REACTIONS (5)
  - Oxygen saturation decreased [Recovered/Resolved]
  - Hypoxic-ischaemic encephalopathy [Unknown]
  - Upper gastrointestinal haemorrhage [Recovered/Resolved]
  - Respiratory disorder [Unknown]
  - Disease progression [Unknown]

NARRATIVE: CASE EVENT DATE: 20181124
